FAERS Safety Report 24249633 (Version 3)
Quarter: 2024Q3

REPORT INFORMATION
  Report Type: Spontaneous
  Country: US (occurrence: US)
  Receive Date: 20240826
  Receipt Date: 20240924
  Transmission Date: 20241017
  Serious: Yes (Hospitalization)
  Sender: SANOFI AVENTIS
  Company Number: US-SANOFI-02180595

PATIENT
  Age: 78 Year
  Sex: Male

DRUGS (2)
  1. DUPIXENT [Suspect]
     Active Substance: DUPILUMAB
     Indication: Eczema
     Dosage: 600 MG, 1X
     Route: 058
     Dates: start: 20240604, end: 20240604
  2. DUPIXENT [Suspect]
     Active Substance: DUPILUMAB
     Indication: Dermatitis atopic
     Dosage: 300 MG, QOW
     Route: 058
     Dates: start: 20240617, end: 20240911

REACTIONS (4)
  - Malaise [Unknown]
  - Cellulitis [Unknown]
  - Rash [Unknown]
  - Therapeutic response delayed [Unknown]

NARRATIVE: CASE EVENT DATE: 20240101
